FAERS Safety Report 24686222 (Version 2)
Quarter: 2024Q4

REPORT INFORMATION
  Report Type: Spontaneous
  Country: SE (occurrence: SE)
  Receive Date: 20241202
  Receipt Date: 20241206
  Transmission Date: 20250114
  Serious: Yes (Disabling, Other)
  Sender: SUNOVION
  Company Number: SE-RICHTER-2024-GR-012986

PATIENT

DRUGS (2)
  1. ESTRADIOL\NORETHINDRONE ACETATE\RELUGOLIX [Suspect]
     Active Substance: ESTRADIOL\NORETHINDRONE ACETATE\RELUGOLIX
     Indication: Heavy menstrual bleeding
     Dosage: UNK
     Route: 065
     Dates: start: 20240718, end: 20241110
  2. ESTRADIOL\NORETHINDRONE ACETATE\RELUGOLIX [Suspect]
     Active Substance: ESTRADIOL\NORETHINDRONE ACETATE\RELUGOLIX
     Indication: Iron deficiency

REACTIONS (11)
  - Vaginal haemorrhage [Recovering/Resolving]
  - Menometrorrhagia [Recovered/Resolved]
  - Impaired work ability [Recovered/Resolved]
  - Migraine [Recovered/Resolved]
  - Iron deficiency [Not Recovered/Not Resolved]
  - Condition aggravated [Not Recovered/Not Resolved]
  - Abdominal distension [Not Recovered/Not Resolved]
  - Nasopharyngitis [Not Recovered/Not Resolved]
  - Middle insomnia [Recovered/Resolved]
  - Menstruation delayed [Recovered/Resolved]
  - Headache [Not Recovered/Not Resolved]

NARRATIVE: CASE EVENT DATE: 20240719
